FAERS Safety Report 8127733-8 (Version None)
Quarter: 2011Q4

REPORT INFORMATION
  Report Type: 
  Country: None (occurrence: None)
  Receive Date: 20111227
  Receipt Date: 20111115
  Transmission Date: 20120403
  Serious: No
  Sender: FDA-Public Use
  Company Number: PHHY2011US64727

PATIENT
  Age: 43 Year
  Sex: Female

DRUGS (3)
  1. AMOXICILLIN [Concomitant]
  2. OXYCODONE HCL [Concomitant]
  3. GILENYA [Suspect]
     Indication: MULTIPLE SCLEROSIS
     Dosage: 0.5 MG, QD, ORAL
     Dates: start: 20110630

REACTIONS (4)
  - VISUAL FIELD DEFECT [None]
  - OROPHARYNGEAL PAIN [None]
  - HEADACHE [None]
  - SKIN LESION [None]
